FAERS Safety Report 11820944 (Version 1)
Quarter: 2015Q4

REPORT INFORMATION
  Report Type: Spontaneous
  Country: US (occurrence: US)
  Receive Date: 20151210
  Receipt Date: 20151210
  Transmission Date: 20160305
  Serious: No
  Sender: FDA-Public Use
  Company Number: US-JNJFOC-20150618380

PATIENT
  Sex: Male
  Weight: 105 kg

DRUGS (20)
  1. NEURONTIN [Concomitant]
     Active Substance: GABAPENTIN
     Route: 048
     Dates: start: 20150522
  2. STOOL SOFTENER [Concomitant]
     Active Substance: DOCUSATE CALCIUM
     Route: 048
     Dates: start: 20150410
  3. MELATONIN [Concomitant]
     Active Substance: MELATONIN
     Dosage: 20 OR 30 MG QHS (PRN)
     Route: 048
     Dates: start: 20150410
  4. ACYCLOVIR. [Concomitant]
     Active Substance: ACYCLOVIR
     Route: 048
     Dates: start: 20150109
  5. COMPAZINE [Concomitant]
     Active Substance: PROCHLORPERAZINE MALEATE
     Route: 048
     Dates: start: 20141218
  6. MORPHINE [Concomitant]
     Active Substance: MORPHINE
     Route: 048
     Dates: start: 20140909
  7. ATORVASTATIN [Concomitant]
     Active Substance: ATORVASTATIN
     Route: 048
     Dates: start: 20150109
  8. LATANOPROST. [Concomitant]
     Active Substance: LATANOPROST
     Route: 047
     Dates: start: 20140121
  9. CALTRATE [Concomitant]
     Active Substance: CALCIUM CARBONATE
     Route: 048
     Dates: start: 20140121
  10. COMBIVENT [Concomitant]
     Active Substance: ALBUTEROL SULFATE\IPRATROPIUM BROMIDE
     Route: 055
     Dates: start: 20140121
  11. NITROGLYCERIN. [Concomitant]
     Active Substance: NITROGLYCERIN
     Route: 060
     Dates: start: 20140121
  12. MORPHINE [Concomitant]
     Active Substance: MORPHINE
     Route: 048
     Dates: start: 20140909
  13. HYDROCHLOROTHIAZIDE. [Concomitant]
     Active Substance: HYDROCHLOROTHIAZIDE
     Route: 048
     Dates: start: 20150109
  14. ZOFRAN [Concomitant]
     Active Substance: ONDANSETRON HYDROCHLORIDE
     Route: 048
     Dates: start: 20141218
  15. POTASSIUM CHLORIDE. [Concomitant]
     Active Substance: POTASSIUM CHLORIDE
     Dates: start: 20150109
  16. ZINC SULFATE [Concomitant]
     Active Substance: ZINC SULFATE\ZINC SULFATE ANHYDROUS
     Route: 048
     Dates: start: 20140109
  17. IMBRUVICA [Suspect]
     Active Substance: IBRUTINIB
     Indication: CHRONIC LYMPHOCYTIC LEUKAEMIA
     Route: 048
     Dates: start: 201501, end: 20150522
  18. CARVEDILOL. [Concomitant]
     Active Substance: CARVEDILOL
     Route: 048
     Dates: start: 20150410
  19. PREDNISOLONE ACETATE. [Concomitant]
     Active Substance: PREDNISOLONE ACETATE
     Route: 047
     Dates: start: 20150306
  20. SULFAMETHOXAZOLE AND TRIMETHOPRIM DOUBLE STRENGTH [Concomitant]
     Active Substance: SULFAMETHOXAZOLE\TRIMETHOPRIM
     Route: 048
     Dates: start: 20150109

REACTIONS (5)
  - Prescribed underdose [Unknown]
  - Pneumonia [Recovered/Resolved]
  - Neutropenia [Not Recovered/Not Resolved]
  - Oedema peripheral [Unknown]
  - Leukopenia [Not Recovered/Not Resolved]

NARRATIVE: CASE EVENT DATE: 2015
